FAERS Safety Report 18685940 (Version 2)
Quarter: 2021Q1

REPORT INFORMATION
  Report Type: Report from Study
  Country: None (occurrence: US)
  Receive Date: 20201230
  Receipt Date: 20210108
  Transmission Date: 20210419
  Serious: Yes (Other)
  Sender: FDA-Public Use
  Company Number: US-SUNOVION-2020SUN003815

PATIENT
  Age: 70 Year
  Sex: Female
  Weight: 68.03 kg

DRUGS (9)
  1. BROMALINE [Concomitant]
  2. OSELTAMIVIR [Concomitant]
     Active Substance: OSELTAMIVIR
     Dosage: 75 MG
  3. CARBIDOPA LEVODOPA [Concomitant]
     Active Substance: CARBIDOPA\LEVODOPA
     Dosage: 25?100 MG 5 TIMES A DAY
     Route: 048
     Dates: start: 20200608
  4. RHODIOLA ROSEA [Concomitant]
     Active Substance: HERBALS
  5. OMEGA 3 [Concomitant]
     Active Substance: OMEGA-3 FATTY ACIDS
  6. RYTARY [Concomitant]
     Active Substance: CARBIDOPA\LEVODOPA
     Dosage: 75?95 MG ORAL CAPSULE, EXTENDED RELEASE
     Route: 048
  7. NAC [Concomitant]
  8. KYNMOBI [Suspect]
     Active Substance: APOMORPHINE HYDROCHLORIDE
     Indication: PARKINSON^S DISEASE
     Dosage: 5 MG, SINGLE (1/2 10 MG)
     Route: 060
     Dates: start: 20201216, end: 20201216
  9. TYROSINE [Concomitant]
     Active Substance: TYROSINE

REACTIONS (7)
  - Hypotension [Recovered/Resolved]
  - Bradycardia [Recovered/Resolved]
  - Nausea [Recovered/Resolved]
  - Dizziness [Recovered/Resolved]
  - Hyperhidrosis [Recovered/Resolved]
  - Somnolence [Recovered/Resolved]
  - Wrong technique in product usage process [Unknown]

NARRATIVE: CASE EVENT DATE: 20201217
